FAERS Safety Report 8767268 (Version 2)
Quarter: 2014Q1

REPORT INFORMATION
  Report Type: Other
  Country: FR (occurrence: FR)
  Receive Date: 20120904
  Receipt Date: 20140318
  Transmission Date: 20141002
  Serious: Yes (Hospitalization, Other)
  Sender: FDA-Public Use
  Company Number: FR-US-EMD SERONO, INC.-7157605

PATIENT
  Age: 52 Year
  Sex: Male

DRUGS (1)
  1. INTERFERON BETA [Suspect]
     Indication: MULTIPLE SCLEROSIS
     Dates: start: 2008

REACTIONS (13)
  - Dyspnoea [Unknown]
  - Renal failure [Not Recovered/Not Resolved]
  - Hypertension [Unknown]
  - Tachycardia [Unknown]
  - Fluid overload [Unknown]
  - Proteinuria [Unknown]
  - Haematuria [Unknown]
  - Shock haemorrhagic [Unknown]
  - Coagulation test abnormal [Recovering/Resolving]
  - Retinal haemorrhage [Unknown]
  - Thrombotic microangiopathy [Recovering/Resolving]
  - Raynaud^s phenomenon [Unknown]
  - Headache [Unknown]
